FAERS Safety Report 20734709 (Version 3)
Quarter: 2022Q2

REPORT INFORMATION
  Report Type: Spontaneous
  Country: FR (occurrence: FR)
  Receive Date: 20220421
  Receipt Date: 20220505
  Transmission Date: 20220720
  Serious: Yes (Other)
  Sender: FDA-Public Use
  Company Number: None

PATIENT
  Age: 60 Year
  Sex: Male
  Weight: 65 kg

DRUGS (23)
  1. CEFUROXIME SODIUM [Suspect]
     Active Substance: CEFUROXIME SODIUM
     Indication: General anaesthesia
     Dosage: 3 G
     Route: 041
     Dates: start: 20220208, end: 20220208
  2. NOREPINEPHRINE [Suspect]
     Active Substance: NOREPINEPHRINE
     Indication: General anaesthesia
     Dosage: 436.67 ?G
     Route: 041
     Dates: start: 20220208, end: 20220208
  3. PROTAMINE SULFATE [Suspect]
     Active Substance: PROTAMINE SULFATE
     Indication: General anaesthesia
     Dosage: 25000 IU
     Route: 041
     Dates: start: 20220208, end: 20220208
  4. PROTAMINE SULFATE [Suspect]
     Active Substance: PROTAMINE SULFATE
     Indication: Anticoagulation drug level
     Dosage: UNK UNK, QD
     Route: 065
  5. ATROPINE [Suspect]
     Active Substance: ATROPINE
     Indication: General anaesthesia
     Dosage: 1 MG
     Route: 041
     Dates: start: 20220208, end: 20220208
  6. ATRACURIUM [Suspect]
     Active Substance: ATRACURIUM
     Indication: General anaesthesia
     Dosage: 40 MG
     Route: 041
     Dates: start: 20220208, end: 20220208
  7. MIDAZOLAM [Suspect]
     Active Substance: MIDAZOLAM
     Indication: General anaesthesia
     Dosage: 5 MG
     Route: 041
     Dates: start: 20220208, end: 20220208
  8. PROPOFOL [Suspect]
     Active Substance: PROPOFOL
     Indication: General anaesthesia
     Dosage: 11 ?G
     Route: 041
     Dates: start: 20220208, end: 20220208
  9. SUFENTANIL [Suspect]
     Active Substance: SUFENTANIL
     Indication: General anaesthesia
     Dosage: 1.34 MG/ML
     Route: 041
     Dates: start: 20220208, end: 20220208
  10. ETOMIDATE [Suspect]
     Active Substance: ETOMIDATE
     Indication: General anaesthesia
     Dosage: 10 MG
     Route: 041
     Dates: start: 20220208, end: 20220208
  11. ETOMIDATE [Suspect]
     Active Substance: ETOMIDATE
     Indication: General anaesthesia
  12. HEPARIN SODIUM [Suspect]
     Active Substance: HEPARIN SODIUM
     Indication: General anaesthesia
     Dosage: 20000 IU
     Route: 041
     Dates: start: 20220208, end: 20220208
  13. HEPARIN SODIUM [Suspect]
     Active Substance: HEPARIN SODIUM
     Indication: Anticoagulation drug level
     Dosage: UNK, QD
     Route: 065
  14. TRANEXAMIC ACID [Suspect]
     Active Substance: TRANEXAMIC ACID
     Indication: General anaesthesia
     Dosage: 0.9 G
     Route: 041
     Dates: start: 20220208, end: 20220208
  15. TRANEXAMIC ACID [Suspect]
     Active Substance: TRANEXAMIC ACID
     Indication: Anticoagulation drug level
     Dosage: UNK UNK, QD
     Route: 065
  16. AMLODIPINE BESYLATE [Concomitant]
     Active Substance: AMLODIPINE BESYLATE
     Indication: Product used for unknown indication
     Dosage: 10 MG, QD, (EVENING)
     Route: 065
  17. PRADAXA [Concomitant]
     Active Substance: DABIGATRAN ETEXILATE MESYLATE
     Indication: Product used for unknown indication
     Dosage: 110 MG, BID, MORNING AND EVENING
     Route: 065
  18. BISOPROLOL [Concomitant]
     Active Substance: BISOPROLOL
     Indication: Product used for unknown indication
     Dosage: 5 MG, QD, MORNING
     Route: 065
  19. ATORVASTATIN [Concomitant]
     Active Substance: ATORVASTATIN
     Indication: Product used for unknown indication
     Dosage: 40 MG
     Route: 065
  20. PANTOPRAZOLE [Concomitant]
     Active Substance: PANTOPRAZOLE
     Indication: Product used for unknown indication
     Dosage: 20 MG, QD, EVENING
     Route: 065
  21. RAMIPRIL [Concomitant]
     Active Substance: RAMIPRIL
     Indication: Product used for unknown indication
     Dosage: 10 MG, QD, MORNING
     Route: 065
  22. NITROGLYCERIN [Concomitant]
     Active Substance: NITROGLYCERIN
     Indication: Product used for unknown indication
     Dosage: 10 MG
     Route: 065
  23. NITROGLYCERIN [Concomitant]
     Active Substance: NITROGLYCERIN
     Indication: Product used for unknown indication
     Dosage: UNK
     Route: 065

REACTIONS (2)
  - Cholestasis [Recovering/Resolving]
  - Transaminases increased [Recovering/Resolving]

NARRATIVE: CASE EVENT DATE: 20220208
